APPROVED DRUG PRODUCT: CYCLOSPORINE
Active Ingredient: CYCLOSPORINE
Strength: 100MG/ML
Dosage Form/Route: SOLUTION;ORAL
Application: A065054 | Product #001
Applicant: DR REDDYS LABORATORIES SA
Approved: Dec 18, 2001 | RLD: No | RS: No | Type: DISCN